FAERS Safety Report 24978067 (Version 2)
Quarter: 2025Q1

REPORT INFORMATION
  Report Type: Spontaneous
  Country: US (occurrence: US)
  Receive Date: 20250217
  Receipt Date: 20250305
  Transmission Date: 20250408
  Serious: Yes (Life-Threatening, Hospitalization, Other)
  Sender: BAUSCH AND LOMB
  Company Number: US-BAUSCH-BL-2025-001932

PATIENT
  Sex: Female

DRUGS (1)
  1. BUPROPION [Suspect]
     Active Substance: BUPROPION
     Indication: Product used for unknown indication
     Route: 065

REACTIONS (8)
  - Brain death [Unknown]
  - Cardiac arrest [Recovering/Resolving]
  - Encephalopathy [Recovering/Resolving]
  - Nervous system disorder [Recovering/Resolving]
  - Cardiac failure congestive [Recovering/Resolving]
  - Seizure [Recovering/Resolving]
  - Circulatory collapse [Recovering/Resolving]
  - Overdose [Unknown]
